FAERS Safety Report 16360632 (Version 1)
Quarter: 2019Q2

REPORT INFORMATION
  Report Type: Spontaneous
  Country: US (occurrence: US)
  Receive Date: 20190528
  Receipt Date: 20190528
  Transmission Date: 20190711
  Serious: Yes (Other)
  Sender: FDA-Public Use
  Company Number: US-BRISTOL-MYERS SQUIBB COMPANY-BMS-2019-049607

PATIENT
  Age: 64 Year
  Sex: Male

DRUGS (2)
  1. IPILIMUMAB [Suspect]
     Active Substance: IPILIMUMAB
     Indication: CHOROID MELANOMA
     Dosage: 3 MILLIGRAM/KILOGRAM, Q3WK
     Route: 065
  2. PEMBROLIZUMAB. [Suspect]
     Active Substance: PEMBROLIZUMAB
     Indication: CHOROID MELANOMA
     Dosage: 200 MILLIGRAM, Q3WK
     Route: 042

REACTIONS (5)
  - Morphoea [Unknown]
  - Colitis [Unknown]
  - Hypothyroidism [Unknown]
  - Vitiligo [Recovering/Resolving]
  - Malignant neoplasm progression [Unknown]
